FAERS Safety Report 9316124 (Version 1)
Quarter: 2013Q2

REPORT INFORMATION
  Report Type: Spontaneous
  Country: DE (occurrence: DE)
  Receive Date: 20130530
  Receipt Date: 20130530
  Transmission Date: 20140414
  Serious: Yes (Hospitalization, Other)
  Sender: FDA-Public Use
  Company Number: DE-AMGEN-DEUSP2013037923

PATIENT
  Sex: Female

DRUGS (1)
  1. XGEVA [Suspect]
     Indication: NEOPLASM MALIGNANT

REACTIONS (4)
  - Osteonecrosis of jaw [Unknown]
  - Suicidal ideation [Unknown]
  - Hypophagia [Unknown]
  - Quality of life decreased [Unknown]
